FAERS Safety Report 4492082-6 (Version None)
Quarter: 2004Q4

REPORT INFORMATION
  Report Type: 
  Country: None (occurrence: None)
  Receive Date: 20041103
  Receipt Date: 20041026
  Transmission Date: 20050328
  Serious: Yes (Disabling)
  Sender: FDA-Public Use
  Company Number: PHBS2004IT14380

PATIENT
  Age: 68 Year
  Sex: Female

DRUGS (2)
  1. ZOMETA [Suspect]
     Indication: METASTASES TO BONE
     Dosage: 4 MG/MONTH
     Route: 042
     Dates: start: 20030321, end: 20041015
  2. AROMASIN [Concomitant]
     Dosage: 25 MG/D
     Route: 048

REACTIONS (3)
  - INFECTION [None]
  - OSTEOMYELITIS [None]
  - TOOTH EXTRACTION [None]
